FAERS Safety Report 16005352 (Version 1)
Quarter: 2019Q1

REPORT INFORMATION
  Report Type: Spontaneous
  Country: US (occurrence: US)
  Receive Date: 20190226
  Receipt Date: 20190226
  Transmission Date: 20190418
  Serious: No
  Sender: FDA-Public Use
  Company Number: US-PFIZER INC-2019078944

PATIENT
  Age: 82 Year
  Sex: Female

DRUGS (3)
  1. ATORVASTATIN CALCIUM. [Suspect]
     Active Substance: ATORVASTATIN CALCIUM
     Dosage: UNK
  2. JAKAFI [Suspect]
     Active Substance: RUXOLITINIB
     Indication: POLYCYTHAEMIA VERA
     Dosage: 15 MG, 2X/DAY
     Route: 048
     Dates: start: 20161202
  3. JAKAFI [Suspect]
     Active Substance: RUXOLITINIB
     Dosage: 15 MG, 2X/DAY
     Route: 048

REACTIONS (7)
  - Decreased activity [Unknown]
  - Early satiety [Unknown]
  - Skin exfoliation [Recovering/Resolving]
  - Weight increased [Unknown]
  - Spinal column stenosis [Unknown]
  - Arthritis [Unknown]
  - Walking aid user [Unknown]
